FAERS Safety Report 5866686-X (Version None)
Quarter: 2008Q3

REPORT INFORMATION
  Report Type: 
  Country: None (occurrence: None)
  Receive Date: 20080821
  Receipt Date: 20080807
  Transmission Date: 20090109
  Serious: Yes (Hospitalization)
  Sender: FDA-Public Use
  Company Number: THYM-11248

PATIENT
  Age: 41 Year
  Sex: Female

DRUGS (13)
  1. THYMOGLOBULIN [Suspect]
     Indication: PANCREAS TRANSPLANT
     Dosage: 75 MG,QD,INTRAVENOUS
     Route: 042
     Dates: start: 20040819, end: 20040819
  2. THYMOGLOBULIN [Suspect]
     Indication: RENAL TRANSPLANT
     Dosage: 75 MG,QD,INTRAVENOUS
     Route: 042
     Dates: start: 20040819, end: 20040819
  3. THYMOGLOBULIN [Suspect]
     Indication: PANCREAS TRANSPLANT
     Dosage: 75 MG,QD,INTRAVENOUS
     Route: 042
     Dates: start: 20040820, end: 20040826
  4. THYMOGLOBULIN [Suspect]
     Indication: RENAL TRANSPLANT
     Dosage: 75 MG,QD,INTRAVENOUS
     Route: 042
     Dates: start: 20040820, end: 20040826
  5. TACROLIMUS [Suspect]
     Indication: IMMUNOSUPPRESSION
  6. SIROLIMUS (SIROLIMUS) [Suspect]
     Indication: IMMUNOSUPPRESSION
  7. BACTRIM [Concomitant]
  8. VALACYCLOVIR HCL [Concomitant]
  9. HEPARIN [Concomitant]
  10. ASPIRIN [Concomitant]
  11. CELLCEPT [Concomitant]
  12. SOLU-MEDROL [Concomitant]
  13. STEROIDS (PREDNISONE OR PREDNISOLONE) [Concomitant]

REACTIONS (3)
  - PANCREAS TRANSPLANT REJECTION [None]
  - PROTEINURIA [None]
  - RENAL TUBULAR DISORDER [None]
